FAERS Safety Report 17546090 (Version 1)
Quarter: 2020Q1

REPORT INFORMATION
  Report Type: Spontaneous
  Country: FR (occurrence: FR)
  Receive Date: 20200316
  Receipt Date: 20200316
  Transmission Date: 20200409
  Serious: Yes (Hospitalization, Other)
  Sender: FDA-Public Use
  Company Number: FR-MYLANLABS-2020M1026771

PATIENT
  Sex: Female

DRUGS (5)
  1. ARIPIPRAZOLE. [Suspect]
     Active Substance: ARIPIPRAZOLE
     Indication: PRODUCT USED FOR UNKNOWN INDICATION
     Dosage: 15 MG, UNK
     Route: 065
  2. ABILIFY [Suspect]
     Active Substance: ARIPIPRAZOLE
     Indication: STRESS
     Dosage: 10 MG, UNK
     Route: 065
     Dates: start: 2016
  3. ABILIFY MAINTENA [Suspect]
     Active Substance: ARIPIPRAZOLE
     Indication: PRODUCT USED FOR UNKNOWN INDICATION
     Dosage: UNK
     Route: 065
     Dates: start: 201701, end: 201703
  4. XANAX [Suspect]
     Active Substance: ALPRAZOLAM
     Indication: PRODUCT USED FOR UNKNOWN INDICATION
     Dosage: UNK
     Route: 065
     Dates: start: 2016, end: 2016
  5. ABILIFY [Suspect]
     Active Substance: ARIPIPRAZOLE
     Indication: ADJUSTMENT DISORDER
     Dosage: UNK

REACTIONS (16)
  - Suicidal ideation [Recovered/Resolved]
  - Gait disturbance [Unknown]
  - Swelling [Recovered/Resolved]
  - Poor quality sleep [Recovered/Resolved]
  - Dyspnoea [Recovered/Resolved]
  - Product use in unapproved indication [Unknown]
  - Peripheral swelling [Recovering/Resolving]
  - Somnolence [Recovering/Resolving]
  - Asthenia [Unknown]
  - Memory impairment [Unknown]
  - Weight loss poor [Not Recovered/Not Resolved]
  - Weight increased [Unknown]
  - Swollen tongue [Recovered/Resolved]
  - Poor peripheral circulation [Unknown]
  - Rhinorrhoea [Recovered/Resolved]
  - Hypersomnia [Unknown]

NARRATIVE: CASE EVENT DATE: 2016
